FAERS Safety Report 19031285 (Version 1)
Quarter: 2021Q1

REPORT INFORMATION
  Report Type: Spontaneous
  Country: US (occurrence: US)
  Receive Date: 20210319
  Receipt Date: 20210319
  Transmission Date: 20210420
  Serious: Yes (Hospitalization)
  Sender: FDA-Public Use
  Company Number: None

PATIENT
  Age: 85 Year
  Sex: Female

DRUGS (1)
  1. CAPECITABINE. [Suspect]
     Active Substance: CAPECITABINE
     Indication: NEOPLASM MALIGNANT
     Route: 048
     Dates: start: 20210121, end: 20210306

REACTIONS (4)
  - Diarrhoea [None]
  - Abdominal pain [None]
  - Dehydration [None]
  - Electrolyte depletion [None]

NARRATIVE: CASE EVENT DATE: 20210306
